FAERS Safety Report 19382790 (Version 2)
Quarter: 2021Q2

REPORT INFORMATION
  Report Type: Spontaneous
  Country: US (occurrence: US)
  Receive Date: 20210607
  Receipt Date: 20210610
  Transmission Date: 20210717
  Serious: Yes (Other)
  Sender: FDA-Public Use
  Company Number: US-ORGANON-O2106USA000360

PATIENT
  Age: 18 Year
  Sex: Female

DRUGS (4)
  1. NEXPLANON [Suspect]
     Active Substance: ETONOGESTREL
     Indication: MENSTRUAL CYCLE MANAGEMENT
  2. VITAMIN D NOS [Concomitant]
     Active Substance: VITAMIN D NOS
     Dosage: UNK
  3. AMOXICILLIN. [Concomitant]
     Active Substance: AMOXICILLIN
     Dosage: UNK
  4. NEXPLANON [Suspect]
     Active Substance: ETONOGESTREL
     Indication: CONTRACEPTION
     Dosage: 1 IMPLANT, EVERY 3 YEARS
     Route: 059
     Dates: start: 2020

REACTIONS (7)
  - Device dislocation [Not Recovered/Not Resolved]
  - Device deployment issue [Not Recovered/Not Resolved]
  - Product use in unapproved indication [Unknown]
  - Complication associated with device [Not Recovered/Not Resolved]
  - Endocrine disorder [Not Recovered/Not Resolved]
  - Heavy menstrual bleeding [Recovered/Resolved]
  - Device issue [Not Recovered/Not Resolved]

NARRATIVE: CASE EVENT DATE: 2020
